FAERS Safety Report 9354047 (Version 1)
Quarter: 2013Q2

REPORT INFORMATION
  Report Type: Spontaneous
  Country: GB (occurrence: GB)
  Receive Date: 20130618
  Receipt Date: 20130618
  Transmission Date: 20140414
  Serious: Yes (Other)
  Sender: FDA-Public Use
  Company Number: GB-TEVA-412118ISR

PATIENT
  Age: 15 Year
  Sex: Female

DRUGS (1)
  1. LAMOTRIGINE [Suspect]
     Indication: PRODUCT USED FOR UNKNOWN INDICATION
     Dosage: 25MG TWICE PER DAY
     Route: 065
     Dates: start: 201304

REACTIONS (6)
  - Partial seizures [Unknown]
  - Poverty of speech [Unknown]
  - Confusional state [Unknown]
  - Alopecia [Unknown]
  - Asocial behaviour [Unknown]
  - Stress [Unknown]
